FAERS Safety Report 9186978 (Version 1)
Quarter: 2013Q1

REPORT INFORMATION
  Report Type: Report from Study
  Country: CA (occurrence: CA)
  Receive Date: 20130325
  Receipt Date: 20130325
  Transmission Date: 20140127
  Serious: Yes (Other)
  Sender: FDA-Public Use
  Company Number: CA-JNJFOC-20130116257

PATIENT
  Age: 20 Year
  Sex: Male
  Weight: 84 kg

DRUGS (5)
  1. REMICADE [Suspect]
     Indication: COLITIS ULCERATIVE
     Route: 042
     Dates: start: 20120514
  2. IMURAN [Concomitant]
     Route: 065
  3. PENTASA [Concomitant]
     Route: 065
  4. CALCIUM [Concomitant]
     Route: 065
  5. VITAMIN D [Concomitant]
     Route: 065

REACTIONS (2)
  - Anal abscess [Recovered/Resolved]
  - Diarrhoea [Not Recovered/Not Resolved]
